FAERS Safety Report 8062897-6 (Version None)
Quarter: 2012Q1

REPORT INFORMATION
  Report Type: 
  Country: None (occurrence: None)
  Receive Date: 20120123
  Receipt Date: 20120123
  Transmission Date: 20120608
  Serious: Yes (Life-Threatening, Other)
  Sender: FDA-Public Use
  Company Number: None

PATIENT
  Age: 37 Year
  Sex: Female
  Weight: 105.23 kg

DRUGS (1)
  1. ABILIFY [Suspect]

REACTIONS (4)
  - DIABETES MELLITUS [None]
  - OBESITY [None]
  - WEIGHT INCREASED [None]
  - DYSKINESIA [None]
